FAERS Safety Report 16013822 (Version 1)
Quarter: 2019Q1

REPORT INFORMATION
  Report Type: Spontaneous
  Country: US (occurrence: US)
  Receive Date: 20190227
  Receipt Date: 20190227
  Transmission Date: 20190418
  Serious: No
  Sender: FDA-Public Use
  Company Number: US-ASTRAZENECA-2019SE24525

PATIENT
  Age: 21592 Day
  Sex: Male
  Weight: 98.9 kg

DRUGS (3)
  1. AMLODIPINE LOSARTAN [Concomitant]
     Indication: BLOOD PRESSURE ABNORMAL
     Dosage: 10/160 MG DAILY
     Route: 048
  2. XIGDUO XR [Suspect]
     Active Substance: DAPAGLIFLOZIN PROPANEDIOL\METFORMIN HYDROCHLORIDE
     Indication: TYPE 2 DIABETES MELLITUS
     Dosage: 10/100 MG DAILY
     Route: 048
  3. BYDUREON BCISE [Suspect]
     Active Substance: EXENATIDE
     Indication: TYPE 2 DIABETES MELLITUS
     Route: 058
     Dates: start: 2018

REACTIONS (4)
  - Liquid product physical issue [Unknown]
  - Injection site mass [Unknown]
  - Injection site haemorrhage [Recovered/Resolved]
  - Intentional device misuse [Unknown]

NARRATIVE: CASE EVENT DATE: 20190204
